FAERS Safety Report 16974421 (Version 3)
Quarter: 2020Q4

REPORT INFORMATION
  Report Type: Spontaneous
  Country: US (occurrence: US)
  Receive Date: 20191030
  Receipt Date: 20201222
  Transmission Date: 20210113
  Serious: Yes (Hospitalization, Other)
  Sender: FDA-Public Use
  Company Number: US-SA-2019SA297563

PATIENT

DRUGS (10)
  1. PROBIOTICS NOS [Concomitant]
     Active Substance: PROBIOTICS NOS
  2. NORMAL SALINE [Concomitant]
     Active Substance: SODIUM CHLORIDE
  3. CEREZYME [Suspect]
     Active Substance: IMIGLUCERASE
     Indication: COMPLEMENT FACTOR ABNORMAL
     Dosage: 4000 U, QOW
     Route: 041
     Dates: start: 20160715
  4. HEPARIN [Concomitant]
     Active Substance: HEPARIN SODIUM
  5. EPINEPHRINE. [Concomitant]
     Active Substance: EPINEPHRINE
  6. CEREZYME [Suspect]
     Active Substance: IMIGLUCERASE
     Dosage: 4000 U, QOW
     Route: 041
     Dates: start: 20161103
  7. STERILE WATER [Concomitant]
     Active Substance: WATER
  8. CEREZYME [Suspect]
     Active Substance: IMIGLUCERASE
     Indication: GAUCHER^S DISEASE
     Dosage: 4000 U, QOW
     Route: 041
     Dates: start: 20160224
  9. DIPHENHYDRAMINE. [Concomitant]
     Active Substance: DIPHENHYDRAMINE
  10. FERROUS SULFATE. [Concomitant]
     Active Substance: FERROUS SULFATE

REACTIONS (8)
  - Abdominal pain upper [Unknown]
  - Appendicitis [Unknown]
  - Body temperature increased [Unknown]
  - Pain [Unknown]
  - Chest pain [Unknown]
  - Pulmonary mass [Unknown]
  - Product use in unapproved indication [Unknown]
  - Night sweats [Unknown]

NARRATIVE: CASE EVENT DATE: 202012
